FAERS Safety Report 8029479-3 (Version None)
Quarter: 2012Q1

REPORT INFORMATION
  Report Type: 
  Country: None (occurrence: None)
  Receive Date: 20120109
  Receipt Date: 20120102
  Transmission Date: 20120608
  Serious: Yes (Other)
  Sender: FDA-Public Use
  Company Number: DE-AMGEN-DEUSP2012000312

PATIENT
  Sex: Female

DRUGS (1)
  1. ENBREL [Suspect]
     Indication: RHEUMATOID ARTHRITIS
     Dosage: 25 MG, 2X/WEEK
     Dates: start: 20040101

REACTIONS (7)
  - PRECANCEROUS SKIN LESION [None]
  - TENSION HEADACHE [None]
  - HEART RATE INCREASED [None]
  - RESTLESSNESS [None]
  - EYELID OEDEMA [None]
  - HAEMATOMA [None]
  - CHEST DISCOMFORT [None]
